FAERS Safety Report 4505859-5 (Version None)
Quarter: 2004Q4

REPORT INFORMATION
  Report Type: 
  Country: None (occurrence: None)
  Receive Date: 20041025
  Receipt Date: 20040708
  Transmission Date: 20050328
  Serious: Yes (Other)
  Sender: FDA-Public Use
  Company Number: US-JNJFOC-20040303158

PATIENT
  Age: 61 Year
  Sex: Female
  Weight: 81.6475 kg

DRUGS (3)
  1. REMICADE [Suspect]
     Indication: RHEUMATOID ARTHRITIS
     Dosage: 500 MG, INTRAVENOUS
     Route: 042
     Dates: end: 20020402
  2. METHOTREXATE [Suspect]
     Indication: RHEUMATOID ARTHRITIS
     Dosage: 15 MG, IN 1 DAY; ORAL (SEE IMAGE)
     Route: 048
     Dates: start: 20000101
  3. PREDNISONE [Suspect]
     Indication: RHEUMATOID ARTHRITIS
     Dosage: 5 MG, IN 1 DAY; ORAL
     Route: 048

REACTIONS (3)
  - IMPLANT SITE INFECTION [None]
  - KLEBSIELLA INFECTION [None]
  - URINARY TRACT INFECTION [None]
